FAERS Safety Report 4702900-1 (Version None)
Quarter: 2005Q2

REPORT INFORMATION
  Report Type: 
  Country: None (occurrence: None)
  Receive Date: 20050629
  Receipt Date: 20050616
  Transmission Date: 20051028
  Serious: Yes (Other)
  Sender: FDA-Public Use
  Company Number: BE-JNJFOC-20050400687

PATIENT
  Sex: Female
  Weight: 81 kg

DRUGS (1)
  1. TOPAMAX [Suspect]
     Indication: MIGRAINE WITHOUT AURA
     Dosage: TREATMENT WAS STARTED AT DOSE OF 25MG IN THE MORNING AND 50MG IN THE EVENING
     Route: 049

REACTIONS (6)
  - ATRIAL FLUTTER [None]
  - CHEST PAIN [None]
  - PALPITATIONS [None]
  - PARAESTHESIA [None]
  - RASH [None]
  - SPEECH DISORDER [None]
